FAERS Safety Report 13994538 (Version 2)
Quarter: 2017Q4

REPORT INFORMATION
  Report Type: Report from Study
  Country: US (occurrence: US)
  Receive Date: 20170920
  Receipt Date: 20171003
  Transmission Date: 20180321
  Serious: Yes (Other)
  Sender: FDA-Public Use
  Company Number: US-AMGEN-USASL2017141299

PATIENT
  Age: 59 Year
  Sex: Female

DRUGS (1)
  1. ENBREL [Suspect]
     Active Substance: ETANERCEPT
     Indication: RHEUMATOID ARTHRITIS
     Dosage: 50 MG, UNK
     Route: 065

REACTIONS (7)
  - Eye swelling [Unknown]
  - Road traffic accident [Unknown]
  - Lip injury [Unknown]
  - Injection site reaction [Recovered/Resolved]
  - Alanine aminotransferase increased [Unknown]
  - Chest injury [Unknown]
  - Laceration [Unknown]

NARRATIVE: CASE EVENT DATE: 2017
